FAERS Safety Report 4273661-8 (Version None)
Quarter: 2004Q1

REPORT INFORMATION
  Report Type: 
  Country: None (occurrence: None)
  Receive Date: 20040116
  Receipt Date: 20040116
  Transmission Date: 20041129
  Serious: Yes (Other)
  Sender: FDA-Public Use
  Company Number: None

PATIENT
  Sex: Male
  Weight: 64.4108 kg

DRUGS (1)
  1. ZYVOX [Suspect]
     Dosage: 600 MG Q12H INTRAVENOUS
     Route: 042
     Dates: start: 20031229, end: 20040103

REACTIONS (1)
  - THROMBOCYTOPENIA [None]
